FAERS Safety Report 18572138 (Version 2)
Quarter: 2020Q4

REPORT INFORMATION
  Report Type: Spontaneous
  Country: AU (occurrence: AU)
  Receive Date: 20201202
  Receipt Date: 20201204
  Transmission Date: 20210114
  Serious: Yes (Hospitalization, Other)
  Sender: FDA-Public Use
  Company Number: AU-VALIDUS PHARMACEUTICALS LLC-AU-2020VAL001024

PATIENT

DRUGS (1)
  1. ROCALTROL [Suspect]
     Active Substance: CALCITRIOL
     Indication: HYPOPARATHYROIDISM
     Dosage: UNK
     Route: 065

REACTIONS (13)
  - Exostosis [Unknown]
  - Diarrhoea [Unknown]
  - Overdose [Unknown]
  - Haematemesis [Unknown]
  - Blood phosphorus increased [Unknown]
  - Photosensitivity reaction [Unknown]
  - Loss of consciousness [Unknown]
  - Arthropathy [Unknown]
  - Mental disorder [Unknown]
  - Drug hypersensitivity [Unknown]
  - Tooth loss [Unknown]
  - Weight decreased [Unknown]
  - Endocrine disorder [Unknown]
